FAERS Safety Report 8230446-5 (Version None)
Quarter: 2012Q1

REPORT INFORMATION
  Report Type: 
  Country: None (occurrence: None)
  Receive Date: 20120323
  Receipt Date: 20120310
  Transmission Date: 20120608
  Serious: Yes (Hospitalization)
  Sender: FDA-Public Use
  Company Number: US-BAYER-2011-079328

PATIENT
  Age: 23 Year
  Sex: Female
  Weight: 63 kg

DRUGS (2)
  1. YAZ [Suspect]
  2. YAZ [Suspect]
     Indication: PREMENSTRUAL SYNDROME
     Dosage: UNK
     Dates: start: 20090901, end: 20091201

REACTIONS (4)
  - CHOLECYSTECTOMY [None]
  - MALAISE [None]
  - CHOLECYSTITIS CHRONIC [None]
  - WEIGHT DECREASED [None]
